FAERS Safety Report 7888790-7 (Version None)
Quarter: 2011Q4

REPORT INFORMATION
  Report Type: 
  Country: None (occurrence: None)
  Receive Date: 20111103
  Receipt Date: 20111028
  Transmission Date: 20120403
  Serious: Yes (Hospitalization)
  Sender: FDA-Public Use
  Company Number: AU-SANOFI-AVENTIS-2011SA071778

PATIENT
  Age: 68 Year
  Sex: Female

DRUGS (15)
  1. LOPERAMIDE HCL [Concomitant]
  2. COLOXYL WITH SENNA [Concomitant]
  3. ROSUVASTATIN [Concomitant]
  4. ASPIRIN [Concomitant]
  5. MIRTAZAPINE [Concomitant]
  6. LACTULOSE [Concomitant]
  7. SEROQUEL [Concomitant]
  8. INVESTIGATIONAL DRUG [Suspect]
     Route: 042
     Dates: start: 20111007, end: 20111007
  9. LEVOTHYROXINE SODIUM [Concomitant]
  10. NILSTAT [Concomitant]
  11. DOCETAXEL [Suspect]
     Route: 041
     Dates: start: 20111007, end: 20111007
  12. ATORVASTATIN [Concomitant]
  13. DOCETAXEL [Suspect]
     Indication: BREAST CANCER
     Route: 041
     Dates: start: 20110916, end: 20110916
  14. INVESTIGATIONAL DRUG [Suspect]
     Indication: BREAST CANCER
     Route: 042
     Dates: start: 20110916, end: 20110916
  15. METOPROLOL TARTRATE [Concomitant]

REACTIONS (2)
  - DEPRESSION [None]
  - NEUTROPENIA [None]
